FAERS Safety Report 10224632 (Version 1)
Quarter: 2014Q2

REPORT INFORMATION
  Report Type: Report from Study
  Country: NL (occurrence: NL)
  Receive Date: 20140609
  Receipt Date: 20140609
  Transmission Date: 20141212
  Serious: Yes (Other)
  Sender: FDA-Public Use
  Company Number: NL-BAXTER-2014BAX029792

PATIENT
  Sex: 0

DRUGS (13)
  1. ENDOXAN I.V., POEDER VOOR OPLOSSING VOOR INJECTIE 200, 500, 1000 MG [Suspect]
     Indication: PLASMA CELL MYELOMA
     Dosage: 2 G/M2
     Route: 065
  2. CARFILZOMIB [Suspect]
     Indication: PLASMA CELL MYELOMA
     Dosage: ON DAYS 1 AND 2
     Route: 042
  3. CARFILZOMIB [Suspect]
     Dosage: ON DAYS 8, 9, 15, 16 OF CYCLE 1
     Route: 042
  4. CARFILZOMIB [Suspect]
     Dosage: ON DAYS 1, 2, 8, 9, 15,16 OF ALL SUBSEQUENT 28-DAY CYCLES
     Route: 042
  5. CARFILZOMIB [Suspect]
     Dosage: ON DAYS 8, 9, 15, 16 OF CYCLE 1
     Route: 042
  6. CARFILZOMIB [Suspect]
     Dosage: ON DAYS 1, 2, 8, 9, 15,16 OF ALL SUBSEQUENT 28-DAY CYCLES
     Route: 042
  7. THALIDOMIDE [Suspect]
     Indication: PLASMA CELL MYELOMA
     Dosage: ON DAYS 1 THROUGH 28 OF A 28 DAY CYCLE
     Route: 048
  8. THALIDOMIDE [Suspect]
     Dosage: ON DAYS 1-28 OF A 28 DAY CYCLE
     Route: 048
  9. DEXAMETHASONE [Suspect]
     Indication: PLASMA CELL MYELOMA
     Dosage: ON DAYS 1, 8, 15 AND 22 OF A 28 DAY CYCLE
     Route: 048
  10. DEXAMETHASONE [Suspect]
     Dosage: ON DAYS 1, 8, 15, 22 OF A 28 DAY CYCLE
     Route: 048
  11. MELPHALAN [Suspect]
     Indication: PLASMA CELL MYELOMA
     Route: 065
  12. MELPHALAN [Suspect]
     Indication: STEM CELL TRANSPLANT
  13. GRANULOCYTE COLONY-STIMULATING FACTOR NOS [Concomitant]
     Indication: PRODUCT USED FOR UNKNOWN INDICATION
     Route: 065

REACTIONS (1)
  - Disease progression [Unknown]
